FAERS Safety Report 4324961-4 (Version None)
Quarter: 2004Q1

REPORT INFORMATION
  Report Type: 
  Country: None (occurrence: None)
  Receive Date: 20040324
  Receipt Date: 20031216
  Transmission Date: 20041129
  Serious: Yes (Death)
  Sender: FDA-Public Use
  Company Number: M2004.0158

PATIENT
  Age: 83 Year
  Sex: Female

DRUGS (8)
  1. DICLOFENAC SODIUM [Suspect]
     Indication: ARTHRALGIA
     Dosage: 150MG PO DAILY
     Route: 048
     Dates: start: 20030908, end: 20030910
  2. ZOPICLONE [Concomitant]
  3. ENALPRIL [Concomitant]
  4. FUROSEMIDE [Concomitant]
  5. SPIRONOLACTONE [Concomitant]
  6. VERAPAMIL [Concomitant]
  7. PARACETOAMOL [Concomitant]
  8. TRAMADOL HCL [Concomitant]

REACTIONS (4)
  - BLOOD CREATINE INCREASED [None]
  - BLOOD POTASSIUM INCREASED [None]
  - HAEMATEMESIS [None]
  - MALAISE [None]
